FAERS Safety Report 14625361 (Version 1)
Quarter: 2018Q1

REPORT INFORMATION
  Report Type: Spontaneous
  Country: US (occurrence: US)
  Receive Date: 20180312
  Receipt Date: 20180312
  Transmission Date: 20180509
  Serious: No
  Sender: FDA-Public Use
  Company Number: US-SOFGEN PHARMACEUTICALS, LLC-2043511

PATIENT
  Age: 50 Year
  Sex: Male
  Weight: 77.27 kg

DRUGS (1)
  1. PROGESTERONE. [Suspect]
     Active Substance: PROGESTERONE

REACTIONS (2)
  - Hot flush [Unknown]
  - Skin swelling [Unknown]
